FAERS Safety Report 16128882 (Version 2)
Quarter: 2021Q2

REPORT INFORMATION
  Report Type: Report from Study
  Country: JP (occurrence: JP)
  Receive Date: 20190328
  Receipt Date: 20210427
  Transmission Date: 20210716
  Serious: Yes (Other)
  Sender: FDA-Public Use
  Company Number: JP-GILEAD-2019-0389185

PATIENT
  Age: 50 Year
  Sex: Male

DRUGS (4)
  1. BEZATOL [Concomitant]
     Active Substance: BEZAFIBRATE
     Dosage: UNK
  2. TIVICAY [Suspect]
     Active Substance: DOLUTEGRAVIR SODIUM
     Indication: HIV INFECTION
     Dosage: 50 MG, QD
     Route: 048
     Dates: start: 20170629
  3. FEBURIC [Concomitant]
     Active Substance: FEBUXOSTAT
     Dosage: UNK
     Route: 048
     Dates: start: 20170629
  4. EMTRICITABINE/TENOFOVIR ALAFENAMIDE [Suspect]
     Active Substance: EMTRICITABINE\TENOFOVIR
     Indication: HIV INFECTION
     Dosage: 1 DOSAGE FORM, QD
     Route: 048
     Dates: start: 20170629

REACTIONS (5)
  - Calculus urinary [Recovering/Resolving]
  - Back pain [Recovering/Resolving]
  - Dizziness [Not Recovered/Not Resolved]
  - Hypertriglyceridaemia [Recovering/Resolving]
  - Hypertension [Not Recovered/Not Resolved]

NARRATIVE: CASE EVENT DATE: 20170715
